FAERS Safety Report 6053920-9 (Version None)
Quarter: 2009Q1

REPORT INFORMATION
  Report Type: 
  Country: None (occurrence: None)
  Receive Date: 20090123
  Receipt Date: 20090108
  Transmission Date: 20090719
  Serious: Yes (Hospitalization)
  Sender: FDA-Public Use
  Company Number: 2009S1000555

PATIENT
  Age: 78 Year
  Sex: Female

DRUGS (9)
  1. ALLOPURINOL [Suspect]
     Indication: HYPERURICAEMIA
     Dosage: 150 MG;DAILY;ORAL
     Route: 048
     Dates: end: 20080730
  2. HEXAL (HEXACHLOROPHENE) [Suspect]
     Indication: ATRIAL FIBRILLATION
     Dosage: ORAL
     Route: 048
     Dates: end: 20080730
  3. ACTRAPID HUMAN [Concomitant]
  4. ATACAND [Concomitant]
  5. BUNAZOSIN [Concomitant]
  6. CARMEN [Concomitant]
  7. MOXONIDINE [Concomitant]
  8. ISOPHANE INSULIN [Concomitant]
  9. TORSEMIDE [Concomitant]

REACTIONS (1)
  - DUODENITIS HAEMORRHAGIC [None]
